FAERS Safety Report 7716304-0 (Version None)
Quarter: 2011Q3

REPORT INFORMATION
  Report Type: 
  Country: None (occurrence: None)
  Receive Date: 20110829
  Receipt Date: 20110817
  Transmission Date: 20111222
  Serious: Yes (Other)
  Sender: FDA-Public Use
  Company Number: PHEH2011US01746

PATIENT
  Age: 43 Year
  Sex: Female

DRUGS (2)
  1. DIOVAN [Suspect]
     Dosage: UNK UKN, UNK
  2. TEKTURNA [Suspect]
     Dosage: 300 MG, UNK

REACTIONS (1)
  - RENAL FAILURE [None]
